FAERS Safety Report 4681832-1 (Version None)
Quarter: 2005Q2

REPORT INFORMATION
  Report Type: 
  Country: None (occurrence: None)
  Receive Date: 20050602
  Receipt Date: 20050523
  Transmission Date: 20051028
  Serious: Yes (Other)
  Sender: FDA-Public Use
  Company Number: 2005080081

PATIENT
  Age: 23 Year
  Sex: Female
  Weight: 29.4838 kg

DRUGS (4)
  1. DEPO-PROVERA [Suspect]
     Indication: CONTRACEPTION
     Dosage: 50 MG (50 MG, FIRST AND LAST INJECTION), INTRAMUSCULAR
     Route: 030
     Dates: start: 19921028, end: 19921028
  2. NAPROSYN [Suspect]
     Indication: GENITAL PAIN FEMALE
     Dosage: (750 MG, AS NECESSARY), ORAL
     Route: 048
     Dates: start: 19921018, end: 19930312
  3. MARVELON (DESOGESTREL, ETHINYLESTRADIOL) [Suspect]
     Indication: CONTRACEPTION
     Dosage: ORAL
     Route: 048
     Dates: start: 19930702, end: 19930828
  4. MICROGYNON (ETHINYLESTRADIOL, LEVONORGESTREL) [Suspect]
     Indication: CONTRACEPTION
     Dosage: ORAL
     Route: 048
     Dates: start: 19930604, end: 19930701

REACTIONS (3)
  - AMENORRHOEA [None]
  - BREAST NEOPLASM [None]
  - MUSCLE SPASMS [None]
